FAERS Safety Report 9313631 (Version 1)
Quarter: 2013Q2

REPORT INFORMATION
  Report Type: Spontaneous
  Country: CN (occurrence: CN)
  Receive Date: 20130528
  Receipt Date: 20130528
  Transmission Date: 20140414
  Serious: Yes (Hospitalization, Other)
  Sender: FDA-Public Use
  Company Number: CN-ELI_LILLY_AND_COMPANY-CN201210006001

PATIENT
  Age: 25 Year
  Sex: Male

DRUGS (1)
  1. CECLOR [Suspect]
     Dosage: 0.375 G, BID
     Route: 048
     Dates: start: 20101117, end: 20101120

REACTIONS (6)
  - Skin striae [Recovering/Resolving]
  - Proteinuria [Recovering/Resolving]
  - Serum sickness [Recovering/Resolving]
  - Urticaria [Recovering/Resolving]
  - Arthralgia [Recovering/Resolving]
  - Pain [Recovering/Resolving]
